FAERS Safety Report 13403661 (Version 2)
Quarter: 2017Q2

REPORT INFORMATION
  Report Type: Report from Study
  Country: IL (occurrence: IL)
  Receive Date: 20170405
  Receipt Date: 20170412
  Transmission Date: 20170830
  Serious: Yes (Hospitalization, Other)
  Sender: FDA-Public Use
  Company Number: PHHY2016IL139520

PATIENT
  Age: 79 Year
  Sex: Female

DRUGS (2)
  1. ALOE VERA [Concomitant]
     Active Substance: ALOE VERA LEAF
     Indication: PRURITUS
     Route: 065
  2. AFINITOR [Suspect]
     Active Substance: EVEROLIMUS
     Indication: BREAST CANCER
     Dosage: 10 MG, QD
     Route: 048
     Dates: start: 20160925, end: 20170404

REACTIONS (28)
  - Lung disorder [Unknown]
  - Oedema peripheral [Recovering/Resolving]
  - Back pain [Recovering/Resolving]
  - Pruritus [Recovering/Resolving]
  - Dyspnoea [Not Recovered/Not Resolved]
  - Oral discomfort [Recovering/Resolving]
  - Alopecia [Not Recovered/Not Resolved]
  - Oral pain [Not Recovered/Not Resolved]
  - Urinary tract infection [Unknown]
  - Hypertension [Not Recovered/Not Resolved]
  - Dysuria [Recovering/Resolving]
  - Faeces soft [Unknown]
  - Asthenia [Recovering/Resolving]
  - Arthralgia [Not Recovered/Not Resolved]
  - Diarrhoea [Recovering/Resolving]
  - Pleural effusion [Unknown]
  - Stomatitis [Recovering/Resolving]
  - Blood glucose increased [Not Recovered/Not Resolved]
  - Epistaxis [Recovered/Resolved]
  - Dysgeusia [Not Recovered/Not Resolved]
  - Nausea [Not Recovered/Not Resolved]
  - Headache [Recovering/Resolving]
  - Diarrhoea [Recovered/Resolved]
  - Pyrexia [Not Recovered/Not Resolved]
  - Productive cough [Not Recovered/Not Resolved]
  - Abdominal pain upper [Not Recovered/Not Resolved]
  - Decreased appetite [Recovering/Resolving]
  - Cough [Not Recovered/Not Resolved]

NARRATIVE: CASE EVENT DATE: 20161018
